FAERS Safety Report 6552009-X (Version None)
Quarter: 2010Q1

REPORT INFORMATION
  Report Type: 
  Country: None (occurrence: None)
  Receive Date: 20100126
  Receipt Date: 20100118
  Transmission Date: 20100710
  Serious: Yes (Other)
  Sender: FDA-Public Use
  Company Number: US-BAYER-200917257BCC

PATIENT
  Age: 32 Year
  Sex: Male
  Weight: 85 kg

DRUGS (1)
  1. ALKA-SELTZER EFFERVESCENT NIGHT TIME COLD [Suspect]
     Indication: NASOPHARYNGITIS
     Route: 048
     Dates: start: 20090101

REACTIONS (12)
  - CHEST PAIN [None]
  - COUGH [None]
  - DIARRHOEA [None]
  - FEELING JITTERY [None]
  - FLATULENCE [None]
  - HEADACHE [None]
  - HYPERHIDROSIS [None]
  - INSOMNIA [None]
  - LOSS OF CONSCIOUSNESS [None]
  - NAUSEA [None]
  - PYREXIA [None]
  - RASH [None]
